FAERS Safety Report 17445986 (Version 3)
Quarter: 2020Q1

REPORT INFORMATION
  Report Type: Report from Study
  Country: BR (occurrence: BR)
  Receive Date: 20200221
  Receipt Date: 20200320
  Transmission Date: 20200409
  Serious: Yes (Death, Hospitalization, Other)
  Sender: FDA-Public Use
  Company Number: BR-JNJFOC-20200216175

PATIENT
  Sex: Female

DRUGS (3)
  1. VASOCLEAR [Concomitant]
  2. TRIBULUS MAXIMUS [Concomitant]
  3. SIMPONI [Suspect]
     Active Substance: GOLIMUMAB
     Indication: RHEUMATOID ARTHRITIS
     Route: 058
     Dates: start: 20191101, end: 20200120

REACTIONS (5)
  - Renal failure [Unknown]
  - Anaemia [Fatal]
  - Urinary tract infection [Fatal]
  - Rheumatoid arthritis [Unknown]
  - Anxiety [Unknown]

NARRATIVE: CASE EVENT DATE: 2020
